FAERS Safety Report 5626889-6 (Version None)
Quarter: 2008Q1

REPORT INFORMATION
  Report Type: 
  Country: None (occurrence: None)
  Receive Date: 20080212
  Receipt Date: 20080131
  Transmission Date: 20080703
  Serious: Yes (Other)
  Sender: FDA-Public Use
  Company Number: GXKR2008GB01318

PATIENT
  Age: 67 Year
  Sex: Female

DRUGS (7)
  1. ASPIRIN [Suspect]
  2. RAMIPRIL [Suspect]
  3. SIMVASTATIN [Suspect]
  4. CARDICOR(BISOPROLOL FUMARATE) UNKNOWN [Suspect]
  5. CLOPIDOGREL [Suspect]
  6. PREGABALIN(PREGABALIN) UNKNOWN [Suspect]
     Indication: TRIGEMINAL NEURALGIA
     Dosage: 300 MG, BID
  7. PLAVIX [Suspect]

REACTIONS (2)
  - DRUG INTERACTION [None]
  - MYOCARDIAL INFARCTION [None]
